FAERS Safety Report 6563903-8 (Version None)
Quarter: 2010Q1

REPORT INFORMATION
  Report Type: 
  Country: None (occurrence: None)
  Receive Date: 20100131
  Receipt Date: 20091231
  Transmission Date: 20100710
  Serious: No
  Sender: FDA-Public Use
  Company Number: US-ABBOTT-10P-163-0617771-00

PATIENT
  Age: 73 Year
  Sex: Female
  Weight: 81.72 kg

DRUGS (9)
  1. HUMIRA [Suspect]
     Indication: PSORIASIS
     Dosage: LOADING DOSE
     Route: 058
     Dates: start: 20091230, end: 20091230
  2. CHANTIX [Concomitant]
     Indication: SMOKING CESSATION THERAPY
     Dates: start: 20090101
  3. LEVOXYL [Concomitant]
     Indication: THYROID DISORDER
  4. AVAPRO [Concomitant]
     Indication: HYPERTENSION
  5. LOVASTATIN [Concomitant]
     Indication: BLOOD CHOLESTEROL INCREASED
  6. ASPIRIN [Concomitant]
     Indication: DRUG USE FOR UNKNOWN INDICATION
     Route: 048
  7. METHOCARBAMOL [Concomitant]
     Indication: MUSCLE SPASMS
  8. METHOCARBAMOL [Concomitant]
     Indication: BACK DISORDER
  9. CLOBETASOL PROPIONATE [Concomitant]
     Indication: PSORIASIS
     Route: 061

REACTIONS (1)
  - INJECTION SITE PAIN [None]
